FAERS Safety Report 14546770 (Version 3)
Quarter: 2021Q2

REPORT INFORMATION
  Report Type: Spontaneous
  Country: US (occurrence: US)
  Receive Date: 20180219
  Receipt Date: 20210601
  Transmission Date: 20210716
  Serious: No
  Sender: FDA-Public Use
  Company Number: US-SHIRE-US201806321

PATIENT

DRUGS (12)
  1. NATPARA (PARATHYROID HORMONE) [Suspect]
     Active Substance: PARATHYROID HORMONE
     Indication: HYPOPARATHYROIDISM
     Dosage: 50 ?G, BID
     Route: 058
     Dates: start: 2016
  2. NATPARA (PARATHYROID HORMONE) [Suspect]
     Active Substance: PARATHYROID HORMONE
     Indication: NEPHROCALCINOSIS
  3. NATPARA (PARATHYROID HORMONE) [Suspect]
     Active Substance: PARATHYROID HORMONE
     Indication: NEPHROCALCINOSIS
  4. NATPARA (PARATHYROID HORMONE) [Suspect]
     Active Substance: PARATHYROID HORMONE
     Indication: NEPHROCALCINOSIS
  5. NATPARA (PARATHYROID HORMONE) [Suspect]
     Active Substance: PARATHYROID HORMONE
     Indication: HYPOPARATHYROIDISM
     Dosage: 50 ?G, BID
     Route: 058
     Dates: start: 2016
  6. NATPARA (PARATHYROID HORMONE) [Suspect]
     Active Substance: PARATHYROID HORMONE
     Indication: SYNOVIAL CYST
     Dosage: 50 ?G, DAILY
     Route: 058
  7. NATPARA (PARATHYROID HORMONE) [Suspect]
     Active Substance: PARATHYROID HORMONE
     Indication: SYNOVIAL CYST
     Dosage: 50 ?G, DAILY
     Route: 058
  8. NATPARA (PARATHYROID HORMONE) [Suspect]
     Active Substance: PARATHYROID HORMONE
     Indication: HYPOPARATHYROIDISM
     Dosage: 50 ?G, BID
     Route: 058
     Dates: start: 2016
  9. NATPARA (PARATHYROID HORMONE) [Suspect]
     Active Substance: PARATHYROID HORMONE
     Indication: RENAL IMPAIRMENT
     Dosage: 50 ?G, DAILY
     Route: 058
  10. NATPARA (PARATHYROID HORMONE) [Suspect]
     Active Substance: PARATHYROID HORMONE
     Indication: RENAL IMPAIRMENT
     Dosage: 50 ?G, DAILY
     Route: 058
  11. NATPARA (PARATHYROID HORMONE) [Suspect]
     Active Substance: PARATHYROID HORMONE
     Indication: RENAL IMPAIRMENT
     Dosage: 50 ?G, DAILY
     Route: 058
  12. NATPARA (PARATHYROID HORMONE) [Suspect]
     Active Substance: PARATHYROID HORMONE
     Indication: SYNOVIAL CYST
     Dosage: 50 ?G, DAILY
     Route: 058

REACTIONS (4)
  - Product quality issue [Unknown]
  - Recalled product [Unknown]
  - Inappropriate schedule of product administration [Unknown]
  - Parathyroid disorder [Unknown]
